FAERS Safety Report 6389524-8 (Version None)
Quarter: 2009Q4

REPORT INFORMATION
  Report Type: 
  Country: None (occurrence: None)
  Receive Date: 20091006
  Receipt Date: 20090928
  Transmission Date: 20100525
  Serious: No
  Sender: FDA-Public Use
  Company Number: US-B.I. PHARMACEUTICALS,INC./RIDGEFIELD-2009-BP-11368BP

PATIENT
  Sex: Male

DRUGS (2)
  1. ZANTAC 75 [Suspect]
     Indication: DYSPEPSIA
     Dosage: 75 MG
     Route: 048
     Dates: start: 20090701, end: 20090925
  2. LOTREL [Suspect]
     Indication: HYPERTENSION
     Dates: start: 20070101

REACTIONS (3)
  - INCORRECT DRUG ADMINISTRATION DURATION [None]
  - INCREASED UPPER AIRWAY SECRETION [None]
  - NAUSEA [None]
